FAERS Safety Report 7336190-0 (Version None)
Quarter: 2011Q1

REPORT INFORMATION
  Report Type: 
  Country: None (occurrence: None)
  Receive Date: 20110307
  Receipt Date: 20110303
  Transmission Date: 20110831
  Serious: Yes (Other)
  Sender: FDA-Public Use
  Company Number: DE-ABBOTT-11P-062-0709221-00

PATIENT
  Age: 50 Year

DRUGS (1)
  1. ERYTHROMYCIN [Suspect]
     Indication: ANTIBIOTIC PROPHYLAXIS

REACTIONS (2)
  - TORSADE DE POINTES [None]
  - ATRIAL FIBRILLATION [None]
